FAERS Safety Report 21627601 (Version 1)
Quarter: 2022Q4

REPORT INFORMATION
  Report Type: Spontaneous
  Country: US (occurrence: US)
  Receive Date: 20221122
  Receipt Date: 20221122
  Transmission Date: 20230113
  Serious: No
  Sender: FDA-Public Use
  Company Number: US-ELI_LILLY_AND_COMPANY-US202211009777

PATIENT
  Age: 78 Year
  Sex: Female

DRUGS (2)
  1. EVISTA [Suspect]
     Active Substance: RALOXIFENE HYDROCHLORIDE
     Indication: Breast cancer
     Dosage: UNK UNK, UNKNOWN
     Route: 065
  2. EVISTA [Suspect]
     Active Substance: RALOXIFENE HYDROCHLORIDE
     Indication: Osteoporosis

REACTIONS (5)
  - Fall [Unknown]
  - Head injury [Unknown]
  - Limb injury [Unknown]
  - Eye contusion [Unknown]
  - Eye pain [Unknown]

NARRATIVE: CASE EVENT DATE: 20221111
